FAERS Safety Report 12269437 (Version 6)
Quarter: 2017Q2

REPORT INFORMATION
  Report Type: Report from Study
  Country: CA (occurrence: CA)
  Receive Date: 20160414
  Receipt Date: 20170418
  Transmission Date: 20170830
  Serious: Yes (Other)
  Sender: FDA-Public Use
  Company Number: PHHY2009CA21048

PATIENT
  Age: 56 Year
  Sex: Male

DRUGS (6)
  1. PREDNISONE. [Suspect]
     Active Substance: PREDNISONE
     Indication: PRODUCT USED FOR UNKNOWN INDICATION
     Route: 065
  2. CEPHALEXIN. [Concomitant]
     Active Substance: CEPHALEXIN
     Indication: CELLULITIS
     Dosage: 500 MG, QID
     Route: 048
     Dates: start: 20160701
  3. SANDOSTATIN LAR DEPOT [Suspect]
     Active Substance: OCTREOTIDE ACETATE
     Indication: GASTROINTESTINAL NECROSIS
     Dosage: 10 MG, QMO
     Route: 030
     Dates: start: 20000101
  4. SANDOSTATIN [Suspect]
     Active Substance: OCTREOTIDE ACETATE
     Indication: GASTROINTESTINAL NECROSIS
     Dosage: UNK
     Route: 058
  5. SANDOSTATIN LAR DEPOT [Suspect]
     Active Substance: OCTREOTIDE ACETATE
     Dosage: 30 MG, QMO
     Route: 030
     Dates: start: 20080402
  6. PROLIA [Suspect]
     Active Substance: DENOSUMAB
     Indication: PRODUCT USED FOR UNKNOWN INDICATION
     Dosage: UNK
     Route: 065
     Dates: start: 20160119

REACTIONS (12)
  - Stress [Unknown]
  - Pleural effusion [Unknown]
  - Pyrexia [Unknown]
  - Pruritus [Unknown]
  - Blood pressure systolic increased [Unknown]
  - Cough [Unknown]
  - Pemphigoid [Unknown]
  - Vomiting [Recovered/Resolved]
  - Cellulitis [Unknown]
  - Viral upper respiratory tract infection [Unknown]
  - Pain in extremity [Unknown]
  - Erythema [Unknown]

NARRATIVE: CASE EVENT DATE: 20140113
